FAERS Safety Report 17209134 (Version 1)
Quarter: 2019Q4

REPORT INFORMATION
  Report Type: Spontaneous
  Country: ES (occurrence: ES)
  Receive Date: 20191227
  Receipt Date: 20191227
  Transmission Date: 20200122
  Serious: Yes (Hospitalization, Other)
  Sender: FDA-Public Use
  Company Number: ES-SA-2019SA356725

PATIENT
  Age: 43 Year
  Sex: Female

DRUGS (1)
  1. ALEMTUZUMAB [Suspect]
     Active Substance: ALEMTUZUMAB
     Indication: RELAPSING-REMITTING MULTIPLE SCLEROSIS
     Dosage: 12 MG, QD
     Route: 041

REACTIONS (7)
  - Cerebral toxoplasmosis [Recovering/Resolving]
  - Somnolence [Recovering/Resolving]
  - Partial seizures [Recovering/Resolving]
  - Pyrexia [Recovering/Resolving]
  - Lymphopenia [Recovering/Resolving]
  - Brain abscess [Recovered/Resolved]
  - Headache [Recovering/Resolving]
